FAERS Safety Report 9062800 (Version 1)
Quarter: 2013Q1

REPORT INFORMATION
  Report Type: Spontaneous
  Country: JP (occurrence: JP)
  Receive Date: 20130213
  Receipt Date: 20130213
  Transmission Date: 20140127
  Serious: Yes (Other)
  Sender: FDA-Public Use
  Company Number: JP-JNJFOC-20130202108

PATIENT
  Sex: Female

DRUGS (1)
  1. DUROTEP MT [Suspect]
     Indication: CANCER PAIN
     Route: 062

REACTIONS (5)
  - Convulsion [Unknown]
  - Respiratory depression [Unknown]
  - Loss of consciousness [Unknown]
  - Drug level increased [Unknown]
  - Hypersomnia [Unknown]
